FAERS Safety Report 8973119 (Version 1)
Quarter: 2012Q4

REPORT INFORMATION
  Report Type: 
  Country: JP (occurrence: JP)
  Receive Date: 20121219
  Receipt Date: 20121219
  Transmission Date: 20130627
  Serious: Yes (Hospitalization)
  Sender: FDA-Public Use
  Company Number: JP-ABBOTT-12P-087-1022429-00

PATIENT
  Age: 69 Year
  Sex: Male
  Weight: 75 kg

DRUGS (3)
  1. CLARITH [Suspect]
     Indication: INFECTION
     Route: 048
     Dates: start: 20121105
  2. SYMBICORT [Concomitant]
     Indication: NASOPHARYNGITIS
  3. UNKNOWN EXPECTORANT DRUG [Concomitant]
     Indication: NASOPHARYNGITIS

REACTIONS (1)
  - Interstitial lung disease [Recovering/Resolving]
